FAERS Safety Report 6199510-9 (Version None)
Quarter: 2009Q2

REPORT INFORMATION
  Report Type: 
  Country: None (occurrence: None)
  Receive Date: 20090522
  Receipt Date: 20071213
  Transmission Date: 20091009
  Serious: Yes (Hospitalization)
  Sender: FDA-Public Use
  Company Number: US-ALEXION-A200700004

PATIENT
  Sex: Female
  Weight: 52.8 kg

DRUGS (13)
  1. SOLIRIS [Suspect]
     Indication: PAROXYSMAL NOCTURNAL HAEMOGLOBINURIA
     Dosage: 600 MG, SINGLE
     Route: 042
     Dates: start: 20070419, end: 20070419
  2. SOLIRIS [Suspect]
     Dosage: 600 MG, SINGLE
     Route: 042
     Dates: start: 20070427, end: 20070427
  3. SOLIRIS [Suspect]
     Dosage: 600 MG, SINGLE
     Route: 042
     Dates: start: 20070503, end: 20070503
  4. SOLIRIS [Suspect]
     Dosage: 600 MG, SINGLE
     Route: 042
     Dates: start: 20070510, end: 20070510
  5. SOLIRIS [Suspect]
     Dosage: 900 MG, SINGLE
     Route: 042
     Dates: start: 20070517, end: 20070517
  6. SOLIRIS [Suspect]
     Dosage: 900 MG, SINGLE
     Route: 042
     Dates: start: 20070614, end: 20070614
  7. SOLIRIS [Suspect]
     Dosage: 900 MG, SINGLE
     Route: 042
     Dates: start: 20070719, end: 20070719
  8. ESGIC [Concomitant]
     Indication: HAEMOSIDEROSIS
  9. FOLIC ACID [Concomitant]
     Dosage: 1 MG, QD
     Route: 048
  10. MENACTRA VACCINE [Concomitant]
     Indication: IMMUNISATION
     Dosage: .5 ML, SINGLE
     Dates: start: 20070320, end: 20070320
  11. AMINO ACIDS [Concomitant]
     Dosage: 1000 MG, QD
     Route: 048
  12. PRENATAL VITAMINS /01549301/ [Concomitant]
     Dosage: UNK, QD
  13. VICODIN [Concomitant]
     Dosage: 1-2 TABS, Q4H, PRN

REACTIONS (8)
  - FATIGUE [None]
  - FOLLICULITIS [None]
  - HAEMATOMA [None]
  - HEADACHE [None]
  - MYOSITIS [None]
  - OSTEOMYELITIS ACUTE [None]
  - PYREXIA [None]
  - STAPHYLOCOCCAL ABSCESS [None]
